FAERS Safety Report 5947171-3 (Version None)
Quarter: 2008Q4

REPORT INFORMATION
  Report Type: 
  Country: None (occurrence: None)
  Receive Date: 20081110
  Receipt Date: 20081103
  Transmission Date: 20090506
  Serious: Yes (Other)
  Sender: FDA-Public Use
  Company Number: FR-ABBOTT-08P-056-0485443-00

PATIENT
  Age: 62 Year
  Sex: Male

DRUGS (1)
  1. CYCLOSPORINE [Suspect]
     Indication: PROPHYLAXIS AGAINST TRANSPLANT REJECTION
     Dosage: NOT REPORTED

REACTIONS (4)
  - BASAL CELL CARCINOMA [None]
  - LUNG NEOPLASM MALIGNANT [None]
  - RENAL FAILURE CHRONIC [None]
  - SQUAMOUS CELL CARCINOMA [None]
